FAERS Safety Report 5495310-3 (Version None)
Quarter: 2007Q4

REPORT INFORMATION
  Report Type: 
  Country: None (occurrence: None)
  Receive Date: 20071024
  Receipt Date: 20071012
  Transmission Date: 20080405
  Serious: Yes (Other)
  Sender: FDA-Public Use
  Company Number: US-PFIZER INC-2007086590

PATIENT
  Sex: Female
  Weight: 87.1 kg

DRUGS (13)
  1. LYRICA [Suspect]
     Indication: FIBROMYALGIA
  2. NEXIUM [Concomitant]
  3. TOPAMAX [Concomitant]
  4. WARFARIN SODIUM [Concomitant]
  5. PRAVACHOL [Concomitant]
  6. DETROL LA [Concomitant]
  7. VITAMIN CAP [Concomitant]
  8. CALCIUM WITH VITAMIN D [Concomitant]
  9. DICYCLOMINE [Concomitant]
  10. ULTRACET [Concomitant]
  11. FIORICET [Concomitant]
  12. ALL OTHER THERAPEUTIC PRODUCTS [Concomitant]
  13. ZYRTEC [Concomitant]

REACTIONS (6)
  - ACTIVITIES OF DAILY LIVING IMPAIRED [None]
  - DIZZINESS [None]
  - DRY MOUTH [None]
  - EAR DISCOMFORT [None]
  - FATIGUE [None]
  - SOMNOLENCE [None]
